FAERS Safety Report 8318908-3 (Version None)
Quarter: 2012Q2

REPORT INFORMATION
  Report Type: 
  Country: None (occurrence: None)
  Receive Date: 20120427
  Receipt Date: 20120418
  Transmission Date: 20120825
  Serious: Yes (Hospitalization, Other)
  Sender: FDA-Public Use
  Company Number: SE-JNJFOC-20120408473

PATIENT
  Age: 62 Year
  Sex: Female

DRUGS (5)
  1. REMICADE [Suspect]
     Route: 042
     Dates: start: 20101119, end: 20110401
  2. REMICADE [Suspect]
     Indication: COLITIS ULCERATIVE
     Route: 042
     Dates: start: 20100928
  3. HUMIRA [Suspect]
     Indication: HAEMORRHAGE
     Route: 065
     Dates: start: 20101214, end: 20110401
  4. UNKNOWN MEDICATION [Concomitant]
     Route: 065
  5. SULFASALAZINE [Suspect]
     Indication: COLITIS ULCERATIVE
     Route: 048
     Dates: end: 20110401

REACTIONS (4)
  - ANAPHYLACTIC REACTION [None]
  - ALVEOLITIS [None]
  - SEPSIS [None]
  - INFUSION RELATED REACTION [None]
